FAERS Safety Report 13857135 (Version 1)
Quarter: 2017Q3

REPORT INFORMATION
  Report Type: Spontaneous
  Country: US (occurrence: US)
  Receive Date: 20170810
  Receipt Date: 20170810
  Transmission Date: 20171127
  Serious: Yes (Other)
  Sender: FDA-Public Use
  Company Number: US-ROCHE-780768

PATIENT
  Age: 7 Year
  Sex: Male

DRUGS (2)
  1. OSELTAMIVIR [Suspect]
     Active Substance: OSELTAMIVIR
     Dosage: DOSE; 5 MG/KG/DAY, DOSE INCREASED THE NEXT DAY, STOPPED ON DAY 5 OF TREATMENT
     Route: 050
  2. OSELTAMIVIR [Suspect]
     Active Substance: OSELTAMIVIR
     Indication: H1N1 INFLUENZA
     Dosage: DOSE: 4MG/KG/DAY, SECOND DAY OF ILLNESS
     Route: 050

REACTIONS (2)
  - Drug resistance [Unknown]
  - Drug ineffective [Unknown]
